FAERS Safety Report 12866780 (Version 1)
Quarter: 2016Q4

REPORT INFORMATION
  Report Type: Spontaneous
  Country: US (occurrence: US)
  Receive Date: 20161020
  Receipt Date: 20161020
  Transmission Date: 20170207
  Serious: Yes (Hospitalization)
  Sender: FDA-Public Use
  Company Number: US-FRESENIUS MEDICAL CARE RENAL THERAPIES GROUP-FMC-1609-000914

PATIENT
  Age: 50 Year
  Sex: Female
  Weight: 68 kg

DRUGS (1)
  1. DELFLEX [Suspect]
     Active Substance: CALCIUM CHLORIDE\DEXTROSE\MAGNESIUM CHLORIDE\SODIUM CHLORIDE\SODIUM LACTATE
     Indication: END STAGE RENAL DISEASE
     Route: 033

REACTIONS (3)
  - Peritonitis bacterial [Recovering/Resolving]
  - Inadequate aseptic technique in use of product [None]
  - Staphylococcus test positive [None]

NARRATIVE: CASE EVENT DATE: 20160830
